FAERS Safety Report 24276518 (Version 1)
Quarter: 2024Q3

REPORT INFORMATION
  Report Type: Spontaneous
  Country: FR (occurrence: FR)
  Receive Date: 20240903
  Receipt Date: 20240903
  Transmission Date: 20241016
  Serious: Yes (Other)
  Sender: RANBAXY
  Company Number: FR-AFSSAPS-LL2024001144

PATIENT
  Age: 47 Year
  Sex: Female
  Weight: 90 kg

DRUGS (4)
  1. IBUPROFEN [Suspect]
     Active Substance: IBUPROFEN
     Indication: Toothache
     Dosage: 3 DOSAGE FORM, UNK
     Route: 065
     Dates: start: 20240418
  2. AMOXICILLIN [Suspect]
     Active Substance: AMOXICILLIN
     Indication: Infection
     Dosage: UNK
     Route: 065
     Dates: start: 20240418
  3. ACETAMINOPHEN\CODEINE PHOSPHATE [Suspect]
     Active Substance: ACETAMINOPHEN\CODEINE PHOSPHATE
     Indication: Toothache
     Dosage: 2 DOSAGE FORM, UNK
     Route: 065
  4. DOLIPRANE [Suspect]
     Active Substance: ACETAMINOPHEN
     Indication: Toothache
     Dosage: 4 GRAM, UNK
     Route: 065
     Dates: start: 20240418

REACTIONS (2)
  - Depressed level of consciousness [Recovered/Resolved]
  - Nausea [Recovered/Resolved]

NARRATIVE: CASE EVENT DATE: 20240418
